FAERS Safety Report 7231023-5 (Version None)
Quarter: 2011Q1

REPORT INFORMATION
  Report Type: 
  Country: None (occurrence: None)
  Receive Date: 20110118
  Receipt Date: 20110104
  Transmission Date: 20110831
  Serious: Yes (Hospitalization, Other)
  Sender: FDA-Public Use
  Company Number: US-CELGENEUS-163-21880-11010255

PATIENT
  Sex: Male

DRUGS (13)
  1. LOVASTATIN [Concomitant]
     Route: 065
  2. ISOSORBIDE DINITRATE [Concomitant]
     Route: 065
  3. METOPROLOL [Concomitant]
     Route: 065
  4. PLAVIX [Concomitant]
     Route: 065
  5. LISINOPRIL [Concomitant]
     Route: 065
  6. REVLIMID [Suspect]
     Indication: MYELODYSPLASTIC SYNDROME
     Route: 048
     Dates: start: 20101210, end: 20101201
  7. LEVOXYL [Concomitant]
     Route: 065
  8. CENTRUM [Concomitant]
     Route: 065
  9. GLUCOSAMINE [Concomitant]
     Route: 065
  10. GLIPIZIDE [Concomitant]
     Route: 065
  11. FUROSEMIDE [Concomitant]
     Route: 065
  12. DOXAZOSIN [Concomitant]
     Route: 065
  13. OMEPRAZOLE [Concomitant]
     Route: 065

REACTIONS (6)
  - VOMITING [None]
  - HAEMORRHAGE [None]
  - PRURITUS [None]
  - BLOOD COUNT ABNORMAL [None]
  - DIARRHOEA [None]
  - LOSS OF CONSCIOUSNESS [None]
